FAERS Safety Report 4362127-2 (Version None)
Quarter: 2004Q2

REPORT INFORMATION
  Report Type: 
  Country: None (occurrence: None)
  Receive Date: 20040517
  Receipt Date: 20040429
  Transmission Date: 20050107
  Serious: Yes (Hospitalization)
  Sender: FDA-Public Use
  Company Number: 236583

PATIENT
  Age: 14 Year
  Sex: Male
  Weight: 50 kg

DRUGS (4)
  1. NOVORAPID (INSULIN ASPART)  100U/ML [Suspect]
     Indication: DIABETES MELLITUS INSULIN-DEPENDENT
     Dosage: SUBCUTANEOUS
     Route: 058
     Dates: start: 20021001, end: 20030901
  2. PROTAPHANE (INSULIN HUMAN) [Concomitant]
  3. ACTRAPID (INSULIN HUMAN) SOLUTION FOR INJECTION [Concomitant]
  4. VIANI   (FLUTICASONE PROPIONATE, SALMETEROL XINAFOATE) [Concomitant]

REACTIONS (1)
  - APPENDICITIS [None]
